FAERS Safety Report 14566131 (Version 2)
Quarter: 2018Q2

REPORT INFORMATION
  Report Type: Spontaneous
  Country: US (occurrence: US)
  Receive Date: 20180223
  Receipt Date: 20180430
  Transmission Date: 20180711
  Serious: No
  Sender: FDA-Public Use
  Company Number: US-PFIZER INC-2018076699

PATIENT
  Age: 49 Year
  Sex: Female

DRUGS (2)
  1. GABAPENTIN. [Suspect]
     Active Substance: GABAPENTIN
     Dosage: UNK, AS NEEDED (300 MG TAKE 3 CAPSULE BY ORAL ROUTE 3 TIMES EVERY DAY ALSO 1 EXTRA AT NIGHT IF NEEDE
     Route: 048
  2. GABAPENTIN. [Suspect]
     Active Substance: GABAPENTIN
     Dosage: 900 MG, 3X/DAY (300 MG TAKE 3 CAPSULE BY ORAL ROUTE 3 TIMES EVERY DAY LSO 1 EXTRA AT NIGHT IF NEEDED
     Route: 048

REACTIONS (2)
  - Drug ineffective [Unknown]
  - Prescribed overdose [Unknown]
